FAERS Safety Report 14782827 (Version 1)
Quarter: 2018Q2

REPORT INFORMATION
  Report Type: Other
  Country: CA (occurrence: CA)
  Receive Date: 20180420
  Receipt Date: 20180420
  Transmission Date: 20180711
  Serious: No
  Sender: FDA-Public Use
  Company Number: CA-APOLLO HEALTH AND BEAUTY CARE INC.-2046135

PATIENT
  Sex: Female

DRUGS (1)
  1. EQUATE ANTIBACTERIAL FOAMING HAND SPRING SHOWERS [Suspect]
     Active Substance: BENZALKONIUM CHLORIDE

REACTIONS (1)
  - Erythema [None]
